FAERS Safety Report 14767715 (Version 1)
Quarter: 2018Q2

REPORT INFORMATION
  Report Type: Spontaneous
  Country: US (occurrence: US)
  Receive Date: 20180410
  Receipt Date: 20180410
  Transmission Date: 20180711
  Serious: Yes (Hospitalization)
  Sender: FDA-Public Use
  Company Number: None

PATIENT
  Age: 79 Year
  Sex: Male

DRUGS (1)
  1. IMATINIB 400 MG [Suspect]
     Active Substance: IMATINIB
     Route: 048
     Dates: start: 20180209

REACTIONS (1)
  - Hospitalisation [None]
